FAERS Safety Report 16607132 (Version 1)
Quarter: 2019Q3

REPORT INFORMATION
  Report Type: Report from Study
  Country: CA (occurrence: CA)
  Receive Date: 20190722
  Receipt Date: 20190722
  Transmission Date: 20191004
  Serious: Yes (Other)
  Sender: FDA-Public Use
  Company Number: CA-BRISTOL-MYERS SQUIBB COMPANY-BMS-2018-075581

PATIENT
  Age: 55 Year
  Sex: Male

DRUGS (2)
  1. NIVOLUMAB [Suspect]
     Active Substance: NIVOLUMAB
     Indication: MALIGNANT MELANOMA
     Dosage: 3 MG/KG, Q2WK
     Route: 042
     Dates: start: 20180707, end: 20190712
  2. NAPROXEN. [Concomitant]
     Active Substance: NAPROXEN
     Indication: PRODUCT USED FOR UNKNOWN INDICATION
     Dosage: UNK
     Route: 065

REACTIONS (19)
  - Fatigue [Not Recovered/Not Resolved]
  - Scab [Unknown]
  - Paraesthesia [Recovered/Resolved]
  - Vomiting [Recovered/Resolved]
  - Bradycardia [Not Recovered/Not Resolved]
  - Dry skin [Recovered/Resolved]
  - Rhinorrhoea [Not Recovered/Not Resolved]
  - Cough [Unknown]
  - Back pain [Recovered/Resolved]
  - Constipation [Recovered/Resolved]
  - Rash [Recovered/Resolved]
  - Dysphagia [Recovered/Resolved]
  - Feeling cold [Recovering/Resolving]
  - Somnolence [Recovering/Resolving]
  - Toothache [Recovered/Resolved]
  - Abdominal pain [Recovered/Resolved]
  - Dry mouth [Not Recovered/Not Resolved]
  - Dyspnoea exertional [Not Recovered/Not Resolved]
  - Increased upper airway secretion [Unknown]

NARRATIVE: CASE EVENT DATE: 20180727
